FAERS Safety Report 5967986-5 (Version None)
Quarter: 2008Q4

REPORT INFORMATION
  Report Type: 
  Country: None (occurrence: None)
  Receive Date: 20081121
  Receipt Date: 20081121
  Transmission Date: 20090506
  Serious: No
  Sender: FDA-Public Use
  Company Number: None

PATIENT
  Age: 51 Year
  Sex: Female
  Weight: 88.905 kg

DRUGS (2)
  1. FASTAB 30MG WYETH [Suspect]
     Indication: EMBOLISM
     Dosage: 30MG EVERY DAY PO
     Route: 048
     Dates: start: 20081102, end: 20081120
  2. FASTAB 30MG WYETH [Suspect]
     Indication: PROPHYLAXIS AGAINST GASTROINTESTINAL ULCER
     Dosage: 30MG EVERY DAY PO
     Route: 048
     Dates: start: 20081102, end: 20081120

REACTIONS (3)
  - DEPRESSION [None]
  - DIARRHOEA [None]
  - MUSCULOSKELETAL STIFFNESS [None]
